FAERS Safety Report 21273506 (Version 1)
Quarter: 2022Q3

REPORT INFORMATION
  Report Type: Spontaneous
  Country: US (occurrence: None)
  Receive Date: 20220830
  Receipt Date: 20220830
  Transmission Date: 20221027
  Serious: No
  Sender: FDA-Public Use
  Company Number: None

PATIENT
  Age: 19 Year
  Sex: Female

DRUGS (1)
  1. DUPIXENT [Suspect]
     Active Substance: DUPILUMAB
     Indication: Dermatitis atopic
     Dosage: 300MG EVERY 14 DAYS UNDER THE SKIN?
     Route: 058
     Dates: start: 20220706

REACTIONS (4)
  - Device breakage [None]
  - Device leakage [None]
  - Product dose omission issue [None]
  - Device defective [None]

NARRATIVE: CASE EVENT DATE: 20220826
